FAERS Safety Report 21548703 (Version 1)
Quarter: 2022Q4

REPORT INFORMATION
  Report Type: Spontaneous
  Country: US (occurrence: US)
  Receive Date: 20221103
  Receipt Date: 20221103
  Transmission Date: 20230113
  Serious: Yes (Hospitalization, Other)
  Sender: FDA-Public Use
  Company Number: US-APOTEX-2022AP014863

PATIENT
  Age: 53 Year
  Sex: Female

DRUGS (1)
  1. SOTALOL [Suspect]
     Active Substance: SOTALOL
     Indication: Product used for unknown indication
     Dosage: 15 DOSAGE FORM (FIFTEEN 80 MG SOTALOL TABLET)
     Route: 065

REACTIONS (6)
  - Intentional overdose [Recovering/Resolving]
  - Somnolence [Recovering/Resolving]
  - Ventricular tachycardia [Recovering/Resolving]
  - Hypotension [Recovering/Resolving]
  - Sinus bradycardia [Recovering/Resolving]
  - Electrocardiogram QT prolonged [Recovered/Resolved]
